FAERS Safety Report 21857640 (Version 1)
Quarter: 2023Q1

REPORT INFORMATION
  Report Type: Spontaneous
  Country: CA (occurrence: CA)
  Receive Date: 20230113
  Receipt Date: 20230113
  Transmission Date: 20230418
  Serious: Yes (Other)
  Sender: FDA-Public Use
  Company Number: CA-009507513-1707CAN001320

PATIENT
  Age: 10 Year
  Sex: Male
  Weight: 38.549 kg

DRUGS (5)
  1. SINGULAIR [Suspect]
     Active Substance: MONTELUKAST SODIUM
     Indication: Rhinitis
     Dosage: 5 MG, QD (1 EVERY 1 DAY)
     Route: 048
     Dates: start: 20170601, end: 20170703
  2. SINGULAIR [Suspect]
     Active Substance: MONTELUKAST SODIUM
     Indication: Polyp
  3. SINGULAIR [Suspect]
     Active Substance: MONTELUKAST SODIUM
     Indication: Rhinitis allergic
  4. CETIRIZINE HYDROCHLORIDE [Concomitant]
     Active Substance: CETIRIZINE HYDROCHLORIDE
     Route: 065
  5. FLUTICASONE FUROATE [Concomitant]
     Active Substance: FLUTICASONE FUROATE
     Dosage: FORMULATION: SPRAY, METERED DOSE
     Route: 065

REACTIONS (13)
  - Abnormal behaviour [Recovering/Resolving]
  - Daydreaming [Recovering/Resolving]
  - Dissociation [Recovering/Resolving]
  - Eyelid ptosis [Recovering/Resolving]
  - Fear [Recovering/Resolving]
  - Flat affect [Recovering/Resolving]
  - Separation anxiety disorder [Recovering/Resolving]
  - Social avoidant behaviour [Recovering/Resolving]
  - Mood altered [Recovering/Resolving]
  - Nightmare [Recovering/Resolving]
  - Depression [Recovering/Resolving]
  - Decreased interest [Recovering/Resolving]
  - Insomnia [Recovering/Resolving]

NARRATIVE: CASE EVENT DATE: 20170612
